FAERS Safety Report 24708469 (Version 1)
Quarter: 2024Q4

REPORT INFORMATION
  Report Type: Spontaneous
  Country: US (occurrence: US)
  Receive Date: 20241207
  Receipt Date: 20241207
  Transmission Date: 20250114
  Serious: Yes (Other)
  Sender: PANACEA BIOTEC PHARMA LIMITED
  Company Number: US-PBT-009967

PATIENT
  Age: 17 Year
  Sex: Female

DRUGS (2)
  1. TACROLIMUS [Suspect]
     Active Substance: TACROLIMUS
     Indication: Prophylaxis against transplant rejection
     Route: 065
  2. TACROLIMUS [Suspect]
     Active Substance: TACROLIMUS
     Indication: Prophylaxis against transplant rejection
     Dosage: INCREASED
     Route: 065

REACTIONS (6)
  - Product use in unapproved indication [Unknown]
  - Colitis microscopic [Unknown]
  - Transplant failure [Unknown]
  - Viral diarrhoea [Unknown]
  - Norovirus infection [Unknown]
  - Transplant rejection [Recovered/Resolved]
